FAERS Safety Report 13774084 (Version 3)
Quarter: 2017Q3

REPORT INFORMATION
  Report Type: Report from Study
  Country: JP (occurrence: JP)
  Receive Date: 20170721
  Receipt Date: 20170913
  Transmission Date: 20171127
  Serious: Yes (Death, Other)
  Sender: FDA-Public Use
  Company Number: JP-BRISTOL-MYERS SQUIBB COMPANY-BMS-2016-036257

PATIENT
  Age: 60 Year
  Sex: Female

DRUGS (1)
  1. NIVOLUMAB [Suspect]
     Active Substance: NIVOLUMAB
     Indication: NON-SMALL CELL LUNG CANCER RECURRENT
     Dosage: 3 MG/KG, UNK
     Route: 041
     Dates: start: 20160317, end: 20161013

REACTIONS (4)
  - Infusion related reaction [Recovered/Resolved]
  - Hepatic enzyme increased [Recovered/Resolved]
  - Cardiac failure acute [Fatal]
  - Hypertension [Recovering/Resolving]

NARRATIVE: CASE EVENT DATE: 20160317
